FAERS Safety Report 20185567 (Version 1)
Quarter: 2021Q4

REPORT INFORMATION
  Report Type: Spontaneous
  Country: US (occurrence: US)
  Receive Date: 20211215
  Receipt Date: 20211215
  Transmission Date: 20220303
  Serious: No
  Sender: FDA-Public Use
  Company Number: US-SPECGX-T202102462

PATIENT
  Sex: Male

DRUGS (1)
  1. FENTANYL TRANSDERMAL SYSTEM [Suspect]
     Active Substance: FENTANYL
     Indication: Arthritis
     Dosage: 50 MCG/HR, EVERY 48 HOURS
     Route: 062

REACTIONS (3)
  - Withdrawal syndrome [Unknown]
  - Therapeutic product effect incomplete [Unknown]
  - Product quality issue [Unknown]
